FAERS Safety Report 20476526 (Version 1)
Quarter: 2022Q1

REPORT INFORMATION
  Report Type: Other
  Country: PL (occurrence: None)
  Receive Date: 20220215
  Receipt Date: 20220215
  Transmission Date: 20220424
  Serious: Yes (Other)
  Sender: FDA-Public Use
  Company Number: PL-ROCHE-3022775

PATIENT
  Sex: Female

DRUGS (1)
  1. TRASTUZUMAB [Suspect]
     Active Substance: TRASTUZUMAB
     Indication: HER2 positive breast cancer
     Route: 065

REACTIONS (7)
  - Tricuspid valve incompetence [Unknown]
  - Mitral valve incompetence [Unknown]
  - Arrhythmia [Unknown]
  - Ejection fraction decreased [Unknown]
  - Regurgitation [Unknown]
  - Cardiac disorder [Unknown]
  - Cardiac ventricular disorder [Unknown]
